FAERS Safety Report 14985580 (Version 1)
Quarter: 2018Q2

REPORT INFORMATION
  Report Type: Spontaneous
  Country: US (occurrence: US)
  Receive Date: 20180607
  Receipt Date: 20180607
  Transmission Date: 20180711
  Serious: No
  Sender: FDA-Public Use
  Company Number: US-SUNOVION-2018SUN002270

PATIENT
  Sex: Male

DRUGS (1)
  1. UTIBRON NEOHALER [Suspect]
     Active Substance: GLYCOPYRROLATE\INDACATEROL MALEATE
     Dosage: UNKNOWN
     Route: 055

REACTIONS (1)
  - Cough [Unknown]
